FAERS Safety Report 24356247 (Version 1)
Quarter: 2024Q3

REPORT INFORMATION
  Report Type: Spontaneous
  Country: CN (occurrence: CN)
  Receive Date: 20240924
  Receipt Date: 20240924
  Transmission Date: 20241016
  Serious: Yes (Hospitalization, Other)
  Sender: RANBAXY
  Company Number: CN-SUN PHARMACEUTICAL INDUSTRIES LTD-2024R1-469277

PATIENT
  Age: 33 Year
  Sex: Female

DRUGS (4)
  1. ATOSIBAN [Suspect]
     Active Substance: ATOSIBAN
     Indication: Uterine contractions during pregnancy
     Route: 065
  2. RITODRINE [Suspect]
     Active Substance: RITODRINE
     Indication: Uterine contractions during pregnancy
     Route: 065
  3. IRON SUCROSE [Suspect]
     Active Substance: IRON SUCROSE
     Indication: Uterine contractions during pregnancy
     Route: 065
  4. DEXAMETHASONE [Suspect]
     Active Substance: DEXAMETHASONE
     Indication: Uterine contractions during pregnancy
     Dosage: UNK
     Route: 065

REACTIONS (3)
  - Drug ineffective [Unknown]
  - Exposure during pregnancy [Unknown]
  - Premature delivery [Unknown]
